FAERS Safety Report 6788308-6 (Version None)
Quarter: 2010Q2

REPORT INFORMATION
  Report Type: 
  Country: None (occurrence: None)
  Receive Date: 20100623
  Receipt Date: 20080509
  Transmission Date: 20101027
  Serious: No
  Sender: FDA-Public Use
  Company Number: US-PFIZER INC-2008010866

PATIENT
  Sex: Female
  Weight: 48.99 kg

DRUGS (6)
  1. SUTENT [Suspect]
     Indication: METASTATIC RENAL CELL CARCINOMA
     Route: 048
  2. COLACE [Concomitant]
     Dosage: DAILY
  3. FOLIC ACID [Concomitant]
     Dosage: DAILY
  4. DURAGESIC-100 [Concomitant]
  5. FOLGARD [Concomitant]
     Dosage: DAILY
  6. ALPHAGAN [Concomitant]
     Route: 047

REACTIONS (5)
  - HAEMATOCRIT DECREASED [None]
  - HAEMOGLOBIN DECREASED [None]
  - NEUTROPHIL COUNT DECREASED [None]
  - ORAL PAIN [None]
  - WHITE BLOOD CELL COUNT DECREASED [None]
